FAERS Safety Report 16019543 (Version 3)
Quarter: 2019Q2

REPORT INFORMATION
  Report Type: Report from Study
  Country: CA (occurrence: CA)
  Receive Date: 20190228
  Receipt Date: 20190605
  Transmission Date: 20190711
  Serious: Yes (Hospitalization, Other)
  Sender: FDA-Public Use
  Company Number: CA-TAKEDA-2019TUS007403

PATIENT
  Age: 73 Year
  Sex: Female
  Weight: 56 kg

DRUGS (8)
  1. DEXAMETHASONE. [Suspect]
     Active Substance: DEXAMETHASONE
     Indication: PRODUCT USED FOR UNKNOWN INDICATION
     Dosage: UNK
     Route: 065
  2. REVLIMID [Suspect]
     Active Substance: LENALIDOMIDE
     Indication: PLASMA CELL MYELOMA
     Dosage: 10 MILLIGRAM
     Route: 065
     Dates: start: 20180316
  3. VITAMIN D                          /00107901/ [Concomitant]
     Active Substance: ERGOCALCIFEROL
     Dosage: 1000 INTERNATIONAL UNIT, QD
     Route: 048
  4. IXAZOMIB [Suspect]
     Active Substance: IXAZOMIB
     Indication: PLASMA CELL MYELOMA
     Dosage: 4 MILLIGRAM
     Route: 048
     Dates: start: 20170706
  5. CHOLESTYRAMINE. [Concomitant]
     Active Substance: CHOLESTYRAMINE
  6. PAMIDRONATE [Concomitant]
     Active Substance: PAMIDRONATE DISODIUM
     Dosage: 30 MILLIGRAM, Q4WEEKS
     Route: 042
  7. ASPIRIN                            /00002701/ [Concomitant]
     Active Substance: ASPIRIN
  8. VALACYCLOVIR [Concomitant]
     Active Substance: VALACYCLOVIR HYDROCHLORIDE
     Dosage: 500 MILLIGRAM, QD
     Route: 048

REACTIONS (2)
  - Product dose omission [Unknown]
  - Small intestinal obstruction [Recovered/Resolved]

NARRATIVE: CASE EVENT DATE: 20190127
